FAERS Safety Report 26055822 (Version 1)
Quarter: 2025Q4

REPORT INFORMATION
  Report Type: Spontaneous
  Country: EU (occurrence: EU)
  Receive Date: 20251118
  Receipt Date: 20251118
  Transmission Date: 20260118
  Serious: Yes (Other)
  Sender: CELLTRION
  Company Number: None

PATIENT

DRUGS (1)
  1. INFLIXIMAB [Suspect]
     Active Substance: INFLIXIMAB
     Indication: Colitis ulcerative
     Dosage: 500 MILLIGRAM (ADR IS ADEQUATELY LABELLED: YES )
     Route: 042
     Dates: start: 202505

REACTIONS (2)
  - Frequent bowel movements [Unknown]
  - Haematochezia [Unknown]

NARRATIVE: CASE EVENT DATE: 20250801
